FAERS Safety Report 21239222 (Version 1)
Quarter: 2022Q3

REPORT INFORMATION
  Report Type: Spontaneous
  Country: US (occurrence: None)
  Receive Date: 20220819
  Receipt Date: 20220819
  Transmission Date: 20221027
  Serious: Yes (Other)
  Sender: FDA-Public Use
  Company Number: None

PATIENT
  Age: 82 Year
  Sex: Female
  Weight: 62 kg

DRUGS (1)
  1. ALENDRONATE [Suspect]
     Active Substance: ALENDRONATE SODIUM
     Indication: Osteoporosis
     Dosage: OTHER FREQUENCY : WEEKLY;?
     Route: 048
     Dates: start: 20220818

REACTIONS (2)
  - Oesophageal perforation [None]
  - Gastric ulcer [None]

NARRATIVE: CASE EVENT DATE: 20220819
